FAERS Safety Report 4829130-7 (Version None)
Quarter: 2005Q4

REPORT INFORMATION
  Report Type: 
  Country: None (occurrence: None)
  Receive Date: 20051031
  Receipt Date: 20041025
  Transmission Date: 20060501
  Serious: Yes (Other)
  Sender: FDA-Public Use
  Company Number: 200418198US

PATIENT
  Age: 57 Year
  Sex: Female

DRUGS (5)
  1. ARAVA [Suspect]
     Indication: PSORIATIC ARTHROPATHY
     Dosage: 20 MG QD; PO
     Route: 048
     Dates: start: 20040908, end: 20041022
  2. ARAVA [Suspect]
     Indication: RHEUMATOID ARTHRITIS
     Dosage: 20 MG QD; PO
     Route: 048
     Dates: start: 20040908, end: 20041022
  3. ENBREL [Concomitant]
  4. FOLIC ACID [Concomitant]
  5. SYNTHROID [Concomitant]

REACTIONS (6)
  - ERYTHEMA [None]
  - OCULAR HYPERAEMIA [None]
  - PAIN [None]
  - PARAESTHESIA [None]
  - RASH [None]
  - VASCULITIS [None]
